FAERS Safety Report 4497579-0 (Version None)
Quarter: 2004Q4

REPORT INFORMATION
  Report Type: 
  Country: None (occurrence: None)
  Receive Date: 20041108
  Receipt Date: 20041025
  Transmission Date: 20050328
  Serious: Yes (Death)
  Sender: FDA-Public Use
  Company Number: NSADSS2002017195

PATIENT
  Age: 74 Year
  Sex: Female

DRUGS (4)
  1. REMINYL [Suspect]
     Route: 065
  2. TENORMIN [Concomitant]
  3. DIGITEK [Concomitant]
  4. AMBIEN [Concomitant]

REACTIONS (7)
  - ANXIETY [None]
  - DEPRESSION [None]
  - EATING DISORDER [None]
  - FAILURE TO THRIVE [None]
  - RETCHING [None]
  - WEIGHT DECREASED [None]
  - WHITE BLOOD CELL COUNT INCREASED [None]
